FAERS Safety Report 8550361 (Version 3)
Quarter: 2012Q4

REPORT INFORMATION
  Report Type: Report from Study
  Country: FR (occurrence: FR)
  Receive Date: 20120507
  Receipt Date: 20121010
  Transmission Date: 20130627
  Serious: Yes (Hospitalization)
  Sender: FDA-Public Use
  Company Number: FR-ROCHE-794220

PATIENT
  Age: 48 Year
  Sex: Female
  Weight: 84 kg

DRUGS (13)
  1. ROACTEMRA [Suspect]
     Indication: RHEUMATOID ARTHRITIS
     Dosage: LAST DOSE PRIOR TO SAE: 22 JUNE 2011
     Route: 042
     Dates: start: 20060823, end: 20110622
  2. ROACTEMRA [Suspect]
     Route: 065
  3. ROACTEMRA [Suspect]
     Indication: RHEUMATOID ARTHRITIS
     Route: 065
  4. METHOTREXATE [Suspect]
     Indication: PRODUCT USED FOR UNKNOWN INDICATION
     Route: 065
     Dates: start: 20021021, end: 20110722
  5. PREDNISONE [Suspect]
     Indication: PRODUCT USED FOR UNKNOWN INDICATION
     Route: 065
     Dates: start: 2002, end: 20110727
  6. FOLIC ACID [Concomitant]
     Route: 065
  7. ESOMEPRAZOLE MAGNESIUM [Concomitant]
     Route: 065
  8. FLUOXETINE HYDROCHLORIDE [Concomitant]
     Dosage: DRUG REPORTED AS FLUOXETINE CHLORHYDRATE
     Route: 065
  9. ROSUVASTATIN CALCIUM [Concomitant]
     Dosage: DRUG REPORTED AS ROSUVASTATIN CALLIQUE.
     Route: 065
  10. KODEIN [Concomitant]
     Route: 065
  11. PARACETAMOL [Concomitant]
     Route: 065
  12. PROZAC [Concomitant]
  13. CRESTOR [Concomitant]

REACTIONS (5)
  - Hepatitis E [Recovered/Resolved]
  - Hepatocellular injury [None]
  - Protein urine present [None]
  - Thrombocytopenic purpura [None]
  - Conjunctivitis [None]
